FAERS Safety Report 4745646-6 (Version None)
Quarter: 2005Q3

REPORT INFORMATION
  Report Type: 
  Country: None (occurrence: None)
  Receive Date: 20050811
  Receipt Date: 20050727
  Transmission Date: 20060218
  Serious: Yes (Hospitalization)
  Sender: FDA-Public Use
  Company Number: ERP05000117

PATIENT
  Sex: Male

DRUGS (7)
  1. ACTONEL [Suspect]
     Indication: PROSTATE CANCER
     Dosage: 30 MG, DAILY, ORAL
     Route: 048
     Dates: start: 20050324
  2. DOCETAXEL (DOCETAXEL) [Concomitant]
  3. PREDNISONE [Concomitant]
  4. PARACETAMOL (PARACETAMOL) [Concomitant]
  5. PANTOPRAZOLE SODIUM [Concomitant]
  6. LUCRIN (LEUPRORELIN ACETATE) [Concomitant]
  7. PEGFILGRASTIM (PEGFILGRASTIM) [Concomitant]

REACTIONS (1)
  - HYPOCALCAEMIA [None]
